FAERS Safety Report 24062118 (Version 1)
Quarter: 2024Q3

REPORT INFORMATION
  Report Type: Spontaneous
  Country: US (occurrence: US)
  Receive Date: 20240708
  Receipt Date: 20240708
  Transmission Date: 20241017
  Serious: Yes (Other)
  Sender: MYLAN
  Company Number: US-MYLANLABS-2024M1062579

PATIENT
  Age: 47 Year
  Sex: Male

DRUGS (13)
  1. ETOPOSIDE [Suspect]
     Active Substance: ETOPOSIDE
     Indication: Diffuse large B-cell lymphoma
     Dosage: UNK, CYCLE (RECEIVED 3 CYCLES; R-ICE REGIMEN)
     Route: 065
  2. RITUXIMAB [Suspect]
     Active Substance: RITUXIMAB
     Indication: Diffuse large B-cell lymphoma
     Dosage: UNK UNK, CYCLE (RECEIVED 3 CYCLES; R-ICE REGIMEN)
     Route: 065
  3. IFOSFAMIDE [Suspect]
     Active Substance: IFOSFAMIDE
     Indication: Diffuse large B-cell lymphoma
     Dosage: UNK UNK, CYCLE (RECEIVED 3 CYCLES; R-ICE REGIMEN)
     Route: 065
  4. CARBOPLATIN [Suspect]
     Active Substance: CARBOPLATIN
     Indication: Diffuse large B-cell lymphoma
     Dosage: UNK UNK, CYCLE [RECEIVED 3 CYCLES; R-ICE REGIMEN]
     Route: 065
  5. TACROLIMUS [Concomitant]
     Active Substance: TACROLIMUS
     Indication: Product used for unknown indication
     Dosage: UNK
     Route: 065
  6. PREDNISONE [Concomitant]
     Active Substance: PREDNISONE
     Indication: Product used for unknown indication
     Dosage: 5 MILLIGRAM, QD
     Route: 065
  7. CYCLOPHOSPHAMIDE [Concomitant]
     Active Substance: CYCLOPHOSPHAMIDE
     Indication: Lymphodepletion
     Dosage: UNK UNK, CYCLE
     Route: 065
  8. CYCLOPHOSPHAMIDE [Concomitant]
     Active Substance: CYCLOPHOSPHAMIDE
     Dosage: 300 MILLIGRAM/SQ. METER, QD
     Route: 065
  9. POLATUZUMAB VEDOTIN [Concomitant]
     Active Substance: POLATUZUMAB VEDOTIN
     Indication: Diffuse large B-cell lymphoma
     Dosage: UNK UNK, CYCLE (1 CYCLE)
     Route: 065
  10. BENDAMUSTINE [Concomitant]
     Active Substance: BENDAMUSTINE
     Indication: Diffuse large B-cell lymphoma
     Dosage: UNK UNK, CYCLE (1 CYCLE)
     Route: 065
  11. FLUDARABINE [Concomitant]
     Active Substance: FLUDARABINE PHOSPHATE
     Indication: Lymphodepletion
     Dosage: 30 MILLIGRAM/SQ. METER, QD
     Route: 065
  12. LISOCABTAGENE MARALEUCEL [Concomitant]
     Active Substance: LISOCABTAGENE MARALEUCEL
     Indication: Post transplant lymphoproliferative disorder
     Dosage: UNK
     Route: 065
  13. LISOCABTAGENE MARALEUCEL [Concomitant]
     Active Substance: LISOCABTAGENE MARALEUCEL
     Indication: Diffuse large B-cell lymphoma

REACTIONS (2)
  - Drug ineffective [Unknown]
  - Disease progression [Unknown]
